FAERS Safety Report 12966877 (Version 1)
Quarter: 2016Q4

REPORT INFORMATION
  Report Type: Spontaneous
  Country: GB (occurrence: GB)
  Receive Date: 20161123
  Receipt Date: 20161123
  Transmission Date: 20170207
  Serious: Yes (Hospitalization)
  Sender: FDA-Public Use
  Company Number: GB-ROCHE-1857704

PATIENT

DRUGS (1)
  1. NAPROXEN. [Suspect]
     Active Substance: NAPROXEN
     Indication: ARTHRITIS
     Dosage: 500 MG ONE IN ONE D
     Route: 065

REACTIONS (5)
  - Oesophageal ulcer [Unknown]
  - Intra-abdominal haemorrhage [Unknown]
  - Anaemia [Unknown]
  - Loss of consciousness [Unknown]
  - Haematemesis [Unknown]

NARRATIVE: CASE EVENT DATE: 20151020
